FAERS Safety Report 7283432-6 (Version None)
Quarter: 2011Q1

REPORT INFORMATION
  Report Type: 
  Country: None (occurrence: None)
  Receive Date: 20110209
  Receipt Date: 20101201
  Transmission Date: 20110831
  Serious: Yes (Congenital Anomaly)
  Sender: FDA-Public Use
  Company Number: A0899568A

PATIENT
  Sex: Male

DRUGS (7)
  1. RANITIDINE [Concomitant]
     Route: 064
  2. BUSPAR [Concomitant]
  3. CLINDAMYCIN [Concomitant]
     Dates: start: 20030604
  4. PRENATAL VITAMINS [Concomitant]
  5. PAXIL [Suspect]
     Indication: DEPRESSION
     Dosage: 20MG PER DAY
     Route: 064
     Dates: start: 20000101
  6. PAROXETINE HYDROCHLORIDE [Suspect]
     Indication: DEPRESSION
     Dosage: 20MG PER DAY
     Route: 064
     Dates: start: 20030901
  7. ALBUTEROL [Concomitant]

REACTIONS (2)
  - ATRIAL SEPTAL DEFECT [None]
  - DRUG EXPOSURE DURING PREGNANCY [None]
